FAERS Safety Report 9060452 (Version 3)
Quarter: 2013Q2

REPORT INFORMATION
  Report Type: Spontaneous
  Country: US (occurrence: US)
  Receive Date: 20130212
  Receipt Date: 20130403
  Transmission Date: 20140414
  Serious: Yes (Other)
  Sender: FDA-Public Use
  Company Number: US-JNJFOC-20130115654

PATIENT
  Age: 67 Year
  Sex: Female
  Weight: 93.9 kg

DRUGS (20)
  1. ZYRTEC IR [Suspect]
     Route: 048
  2. ZYRTEC IR [Suspect]
     Indication: PRODUCT USED FOR UNKNOWN INDICATION
     Route: 048
  3. PROZAC [Suspect]
     Indication: DEPRESSION
     Route: 048
     Dates: start: 20120426
  4. PRISTIQ [Suspect]
     Indication: DEPRESSION
     Route: 048
  5. PRISTIQ [Suspect]
     Indication: DEPRESSION
     Route: 048
  6. LYRICA [Suspect]
     Indication: FIBROMYALGIA
     Route: 048
  7. METFORMIN [Concomitant]
     Indication: TYPE 2 DIABETES MELLITUS
     Route: 065
  8. METANX [Concomitant]
     Dosage: 3-35-2MG TWICE DAILY
     Route: 065
  9. LEVOTHYROXINE SODIUM [Concomitant]
     Route: 065
  10. HYDROCODONE W/PARACETAMOL [Concomitant]
     Indication: PAIN
     Dosage: 10-325MG 1 EVERY 4 HOURS
     Route: 065
  11. CINNAMON [Concomitant]
     Dosage: AS DIRECTED
     Route: 065
  12. CALCIUM 500 MG + VITAMIN D [Concomitant]
     Dosage: CALCIUM 500 PLUS VIT D 125
     Route: 065
  13. BIOTIN [Concomitant]
     Dosage: 5000MCG ONE DAILY
     Route: 065
  14. AMITRIPTYLINE [Concomitant]
     Route: 065
  15. ALPRAZOLAM [Concomitant]
     Route: 065
  16. VITAMIN D3 [Concomitant]
     Dosage: 5000UNIT DAILY
     Route: 065
  17. VITAMIN B12 [Concomitant]
     Dosage: 1000MCG DAILY
     Route: 065
  18. SALMON OIL [Concomitant]
     Route: 065
  19. RANITIDINE HCI [Concomitant]
     Route: 065
  20. POTASSIUM [Concomitant]
     Route: 065

REACTIONS (4)
  - Thoracic vertebral fracture [Recovered/Resolved]
  - Fall [Recovered/Resolved]
  - Drug administered to patient of inappropriate age [Unknown]
  - Weight increased [Recovered/Resolved]
